FAERS Safety Report 7866723-7 (Version None)
Quarter: 2011Q4

REPORT INFORMATION
  Report Type: 
  Country: None (occurrence: None)
  Receive Date: 20111028
  Receipt Date: 20110808
  Transmission Date: 20120403
  Serious: No
  Sender: FDA-Public Use
  Company Number: US-GLAXOSMITHKLINE-A0940076A

PATIENT
  Age: 65 Year
  Sex: Female
  Weight: 65.9 kg

DRUGS (3)
  1. FLUTICASONE PROPIONATE [Concomitant]
  2. ADVAIR DISKUS 100/50 [Suspect]
     Indication: ASTHMA
     Dosage: 1PUFF TWICE PER DAY
     Route: 055
     Dates: start: 20110401
  3. VENTOLIN [Concomitant]

REACTIONS (1)
  - DRUG INEFFECTIVE [None]
